FAERS Safety Report 13361472 (Version 1)
Quarter: 2017Q1

REPORT INFORMATION
  Report Type: Report from Study
  Country: JP (occurrence: JP)
  Receive Date: 20170323
  Receipt Date: 20170323
  Transmission Date: 20170429
  Serious: Yes (Death, Life-Threatening, Hospitalization)
  Sender: FDA-Public Use
  Company Number: JP-ROCHE-1909320

PATIENT
  Age: 48 Year
  Sex: Female
  Weight: 49 kg

DRUGS (22)
  1. URSO [Concomitant]
     Active Substance: URSODIOL
     Indication: PROPHYLAXIS AGAINST TRANSPLANT REJECTION
     Route: 050
     Dates: start: 20160618, end: 20161023
  2. CICLOSPORIN [Concomitant]
     Active Substance: CYCLOSPORINE
     Dosage: 46.6-182.6 NG/ML,
     Route: 050
     Dates: start: 20160727, end: 20161023
  3. PREDONINE [Suspect]
     Active Substance: PREDNISOLONE
     Route: 050
     Dates: start: 20160710, end: 20161023
  4. MAINTATE [Concomitant]
     Active Substance: BISOPROLOL FUMARATE
     Indication: TACHYCARDIA
     Route: 050
     Dates: start: 20160620, end: 20161023
  5. PREDONINE [Suspect]
     Active Substance: PREDNISOLONE
     Indication: PROPHYLAXIS AGAINST TRANSPLANT REJECTION
     Route: 050
     Dates: start: 20160615, end: 20160615
  6. PREDONINE [Suspect]
     Active Substance: PREDNISOLONE
     Route: 050
     Dates: start: 20160627, end: 20160630
  7. PREDONINE [Suspect]
     Active Substance: PREDNISOLONE
     Route: 050
     Dates: start: 20160701, end: 20160703
  8. CICLOSPORIN [Concomitant]
     Active Substance: CYCLOSPORINE
     Indication: PROPHYLAXIS AGAINST TRANSPLANT REJECTION
     Dosage: 75.1-338.5 NG/ML,
     Route: 042
     Dates: start: 20160629, end: 20160727
  9. VALTREX [Concomitant]
     Active Substance: VALACYCLOVIR HYDROCHLORIDE
     Indication: INFECTION PROPHYLAXIS
     Route: 050
     Dates: start: 20160618, end: 20161023
  10. TACROLIMUS HYDRATE [Suspect]
     Active Substance: TACROLIMUS
     Indication: PROPHYLAXIS AGAINST TRANSPLANT REJECTION
     Dosage: 16.1 NG/ML
     Route: 050
     Dates: start: 20160616, end: 20160617
  11. PREDONINE [Suspect]
     Active Substance: PREDNISOLONE
     Route: 050
     Dates: start: 20160704, end: 20160706
  12. SAXIZON [Concomitant]
     Active Substance: HYDROCORTISONE SODIUM SUCCINATE
     Indication: PREMEDICATION
     Route: 042
     Dates: start: 20160616, end: 20160616
  13. POLARAMINE [Concomitant]
     Active Substance: DEXCHLORPHENIRAMINE MALEATE
     Indication: PREMEDICATION
     Route: 042
     Dates: start: 20160616, end: 20160616
  14. BAKTAR [Concomitant]
     Active Substance: SULFAMETHOXAZOLE\TRIMETHOPRIM
     Indication: INFECTION PROPHYLAXIS
     Route: 050
     Dates: start: 20160618, end: 20161023
  15. PREDONINE [Suspect]
     Active Substance: PREDNISOLONE
     Route: 050
     Dates: start: 20160707, end: 20160709
  16. MYCOPHENOLATE MOFETIL. [Concomitant]
     Active Substance: MYCOPHENOLATE MOFETIL
     Indication: PROPHYLAXIS AGAINST TRANSPLANT REJECTION
     Route: 048
     Dates: start: 20160616, end: 20160624
  17. MYCOPHENOLATE MOFETIL. [Concomitant]
     Active Substance: MYCOPHENOLATE MOFETIL
     Route: 048
     Dates: start: 20160713, end: 20160731
  18. GLUCONSAN K [Concomitant]
     Indication: HYPOKALAEMIA
     Route: 050
     Dates: start: 20160620, end: 20160704
  19. RITUXIMAB [Suspect]
     Active Substance: RITUXIMAB
     Indication: PROPHYLAXIS AGAINST TRANSPLANT REJECTION
     Dosage: 10 MG/ML
     Route: 041
     Dates: start: 20160616, end: 20160616
  20. TACROLIMUS HYDRATE [Suspect]
     Active Substance: TACROLIMUS
     Dosage: 7.9-31.8 NG/ML
     Route: 042
     Dates: start: 20160617, end: 20160629
  21. SOL-MELCORT [Suspect]
     Active Substance: METHYLPREDNISOLONE SODIUM SUCCINATE
     Indication: PROPHYLAXIS AGAINST TRANSPLANT REJECTION
     Route: 042
     Dates: start: 20160617, end: 20160620
  22. SOL-MELCORT [Suspect]
     Active Substance: METHYLPREDNISOLONE SODIUM SUCCINATE
     Route: 042
     Dates: start: 20160621, end: 20160626

REACTIONS (3)
  - Intestinal ischaemia [Fatal]
  - Sepsis [Not Recovered/Not Resolved]
  - Enterocolitis [Recovering/Resolving]

NARRATIVE: CASE EVENT DATE: 20160622
